FAERS Safety Report 17080978 (Version 1)
Quarter: 2019Q4

REPORT INFORMATION
  Report Type: Report from Study
  Country: NL (occurrence: NL)
  Receive Date: 20191127
  Receipt Date: 20191127
  Transmission Date: 20200122
  Serious: Yes (Life-Threatening)
  Sender: FDA-Public Use
  Company Number: NL-TEVA-2019-NL-1141833

PATIENT
  Age: 52 Year
  Sex: Female

DRUGS (2)
  1. METHOTREXATE (METHOTREXATE SODIUM) [Suspect]
     Active Substance: METHOTREXATE SODIUM
     Indication: RHEUMATOID ARTHRITIS
     Dosage: 15MG, 1X/W
     Dates: start: 20190328
  2. FOLIUMZUUR [Concomitant]
     Active Substance: FOLIC ACID
     Dosage: 10MG, 1X/W
     Dates: start: 20190328

REACTIONS (2)
  - Breast cancer [Not Recovered/Not Resolved]
  - Mesothelioma [Not Recovered/Not Resolved]

NARRATIVE: CASE EVENT DATE: 20190527
